FAERS Safety Report 21136488 (Version 1)
Quarter: 2022Q3

REPORT INFORMATION
  Report Type: Report from Study
  Country: EG (occurrence: EG)
  Receive Date: 20220727
  Receipt Date: 20220727
  Transmission Date: 20221027
  Serious: Yes (Other)
  Sender: FDA-Public Use
  Company Number: EG-NOVARTISPH-NVSC2022EG167825

PATIENT
  Sex: Female

DRUGS (4)
  1. TASIGNA [Suspect]
     Active Substance: NILOTINIB
     Indication: Chronic myeloid leukaemia
     Dosage: 800 MG, QD (4 CAPS OF TASIGNA 200MG, SINCE 2014 UNTIL 2020)
     Route: 048
     Dates: start: 2014, end: 2020
  2. TASIGNA [Suspect]
     Active Substance: NILOTINIB
     Dosage: 600 MG, QD- (THE PATIENT COULD NOT REMEMBER THE EXACT DATES)
     Route: 048
  3. TASIGNA [Suspect]
     Active Substance: NILOTINIB
     Dosage: 750 MG, QD (5 CAPS OF TASIGNA 150MG, THE PATIENT COULD NOT REMEMBER THE EXACT DATES)
     Route: 048
  4. TASIGNA [Suspect]
     Active Substance: NILOTINIB
     Dosage: 450 MG, QD (3 CAPS OF TASIGNA 150MG, (THE PATIENT COULD NOT REMEMBER THE EXACT DATES)
     Route: 048

REACTIONS (11)
  - Platelet count decreased [Recovering/Resolving]
  - Skin discolouration [Recovering/Resolving]
  - White blood cell count decreased [Recovering/Resolving]
  - White blood cell count increased [Recovering/Resolving]
  - Decreased immune responsiveness [Recovering/Resolving]
  - Hepatic enzyme decreased [Not Recovered/Not Resolved]
  - Product dose omission issue [Recovered/Resolved]
  - Incorrect dose administered [Recovered/Resolved]
  - Product availability issue [Not Recovered/Not Resolved]
  - Bone pain [Not Recovered/Not Resolved]
  - Fatigue [Not Recovered/Not Resolved]

NARRATIVE: CASE EVENT DATE: 20200101
